FAERS Safety Report 8827108 (Version 2)
Quarter: 2012Q4

REPORT INFORMATION
  Report Type: 
  Country: US (occurrence: US)
  Receive Date: 20121005
  Receipt Date: 20121025
  Transmission Date: 20130627
  Serious: Yes (Other)
  Sender: FDA-Public Use
  Company Number: US-JNJFOC-20121000399

PATIENT
  Sex: Female
  Weight: 53.52 kg

DRUGS (5)
  1. XARELTO [Suspect]
     Indication: CEREBROVASCULAR ACCIDENT PROPHYLAXIS
     Route: 048
     Dates: start: 20120919
  2. XARELTO [Suspect]
     Indication: ATRIAL FIBRILLATION
     Route: 048
     Dates: start: 20120919
  3. TOPROL [Suspect]
     Indication: ATRIAL FIBRILLATION
     Route: 048
     Dates: start: 2012
  4. TOPROL [Suspect]
     Indication: ATRIAL FIBRILLATION
     Dosage: 12.5 mg in the am and 12.5 mg in the pm
     Route: 048
     Dates: start: 2012
  5. KLONOPIN [Concomitant]
     Route: 048
     Dates: start: 2007

REACTIONS (2)
  - Hypertension [Unknown]
  - Dizziness [Recovered/Resolved]
